FAERS Safety Report 4892406-1 (Version None)
Quarter: 2006Q1

REPORT INFORMATION
  Report Type: 
  Country: None (occurrence: None)
  Receive Date: 20060126
  Receipt Date: 20050830
  Transmission Date: 20060701
  Serious: Yes (Hospitalization, Disabling)
  Sender: FDA-Public Use
  Company Number: US-MERCK-0508USA04821

PATIENT
  Age: 57 Year
  Sex: Male
  Weight: 115 kg

DRUGS (5)
  1. SINGULAIR [Suspect]
     Indication: HYPERSENSITIVITY
     Route: 048
     Dates: start: 20050531, end: 20050531
  2. SINGULAIR [Suspect]
     Indication: ASTHMA
     Route: 048
     Dates: start: 20050531, end: 20050531
  3. [THERAPY UNSPECIFIED] [Concomitant]
     Route: 065
  4. PRINIVIL [Concomitant]
     Route: 065
  5. XALACOM [Concomitant]
     Route: 065

REACTIONS (1)
  - SMALL INTESTINAL OBSTRUCTION [None]
